FAERS Safety Report 21848683 (Version 11)
Quarter: 2023Q4

REPORT INFORMATION
  Report Type: Spontaneous
  Country: US (occurrence: US)
  Receive Date: 20230111
  Receipt Date: 20231115
  Transmission Date: 20240110
  Serious: Yes (Other)
  Sender: FDA-Public Use
  Company Number: US-PFIZER INC-202200730589

PATIENT
  Age: 60 Year
  Sex: Female
  Weight: 56.7 kg

DRUGS (4)
  1. ESTRING [Suspect]
     Active Substance: ESTRADIOL
     Indication: Atrophic vulvovaginitis
     Dosage: 1 DF, EVERY 3 MONTHS
     Route: 067
  2. ESTRING [Suspect]
     Active Substance: ESTRADIOL
     Indication: Vulvovaginal dryness
     Dosage: 2 MG, EVERY 3 MONTHS
     Route: 067
  3. ESTRING [Suspect]
     Active Substance: ESTRADIOL
     Indication: Oestrogen replacement therapy
  4. PREMARIN [Concomitant]
     Active Substance: ESTROGENS, CONJUGATED
     Indication: Vulvovaginal dryness
     Dosage: 0.3 MG
     Route: 048
     Dates: start: 20200521

REACTIONS (3)
  - Musculoskeletal discomfort [Unknown]
  - Sciatica [Unknown]
  - Device use issue [Unknown]
